FAERS Safety Report 23874488 (Version 1)
Quarter: 2024Q2

REPORT INFORMATION
  Report Type: Spontaneous
  Country: LB (occurrence: LB)
  Receive Date: 20240520
  Receipt Date: 20240520
  Transmission Date: 20240716
  Serious: Yes (Death)
  Sender: FDA-Public Use
  Company Number: LB-NOVOPROD-1218874

PATIENT
  Age: 60 Year
  Sex: Male

DRUGS (1)
  1. NOVOSEVEN RT [Suspect]
     Active Substance: COAGULATION FACTOR VIIA RECOMBINANT HUMAN
     Indication: Procedural haemorrhage
     Dosage: ADMINISTERED 2MG OF NOVOSEVEN

REACTIONS (2)
  - Procedural haemorrhage [Fatal]
  - Off label use [Unknown]
